FAERS Safety Report 4720927-0 (Version None)
Quarter: 2005Q3

REPORT INFORMATION
  Report Type: 
  Country: None (occurrence: None)
  Receive Date: 20050719
  Receipt Date: 20050506
  Transmission Date: 20060218
  Serious: Yes (Hospitalization, Other)
  Sender: FDA-Public Use
  Company Number: 2005018352

PATIENT
  Age: 70 Year
  Sex: Female
  Weight: 71.2147 kg

DRUGS (2)
  1. CELEBREX [Suspect]
     Indication: ARTHRITIS
     Dosage: 200 MG (200 MG, 1 IN 1 D), ORAL
     Route: 048
     Dates: start: 20010101, end: 20010101
  2. ANTIHYPERTENSIVES (ANTIHYPERTENSIVES) [Concomitant]

REACTIONS (5)
  - FEELING ABNORMAL [None]
  - MYOCARDIAL INFARCTION [None]
  - NERVOUSNESS [None]
  - PALPITATIONS [None]
  - VEIN DISORDER [None]
